FAERS Safety Report 8879928 (Version 2)
Quarter: 2013Q1

REPORT INFORMATION
  Report Type: Spontaneous
  Country: DE (occurrence: DE)
  Receive Date: 20121031
  Receipt Date: 20130131
  Transmission Date: 20140127
  Serious: Yes (Hospitalization, Other)
  Sender: FDA-Public Use
  Company Number: DE-ELI_LILLY_AND_COMPANY-DE201210006835

PATIENT
  Sex: Male
  Weight: 146 kg

DRUGS (4)
  1. BYDUREON [Suspect]
     Indication: TYPE 2 DIABETES MELLITUS
     Dosage: 2 MG, WEEKLY (1/W)
     Route: 058
     Dates: start: 20120417, end: 201210
  2. METFORMIN [Concomitant]
     Indication: TYPE 2 DIABETES MELLITUS
     Dosage: 1000 DF, UNKNOWN
  3. RAMILICH [Concomitant]
     Indication: HYPERTENSION
     Dosage: 5 MG, UNKNOWN
  4. BEROTEC [Concomitant]
     Indication: TOBACCO ABUSE
     Dosage: UNK, UNKNOWN

REACTIONS (2)
  - Pancreatitis acute [Recovering/Resolving]
  - Glycosylated haemoglobin increased [Not Recovered/Not Resolved]
